FAERS Safety Report 6165171-8 (Version None)
Quarter: 2009Q2

REPORT INFORMATION
  Report Type: 
  Country: None (occurrence: None)
  Receive Date: 20090423
  Receipt Date: 20090420
  Transmission Date: 20091009
  Serious: Yes (Death)
  Sender: FDA-Public Use
  Company Number: US-MEDIMMUNE-MEDI-0008329

PATIENT
  Sex: Male

DRUGS (2)
  1. SYNAGIS [Suspect]
     Dates: end: 20090326
  2. VACCINES [Concomitant]
     Dates: start: 20090326, end: 20090326

REACTIONS (1)
  - SUDDEN INFANT DEATH SYNDROME [None]
